FAERS Safety Report 8078418-8 (Version None)
Quarter: 2012Q1

REPORT INFORMATION
  Report Type: 
  Country: None (occurrence: None)
  Receive Date: 20120127
  Receipt Date: 20110330
  Transmission Date: 20120608
  Serious: Yes (Hospitalization, Other)
  Sender: FDA-Public Use
  Company Number: US-ABBOTT-10P-163-0677293-00

PATIENT
  Sex: Male
  Weight: 84.444 kg

DRUGS (1)
  1. HUMIRA [Suspect]
     Indication: CROHN'S DISEASE

REACTIONS (5)
  - PNEUMONIA LEGIONELLA [None]
  - PAIN [None]
  - MALAISE [None]
  - PYREXIA [None]
  - CHILLS [None]
